FAERS Safety Report 8613188-3 (Version None)
Quarter: 2012Q3

REPORT INFORMATION
  Report Type: 
  Country: None (occurrence: None)
  Receive Date: 20120822
  Receipt Date: 20120801
  Transmission Date: 20120928
  Serious: Yes (Hospitalization)
  Sender: FDA-Public Use
  Company Number: JP-009507513-1208JPN000790

PATIENT

DRUGS (5)
  1. TELAVIC [Suspect]
     Indication: HEPATITIS C
     Route: 048
     Dates: start: 20120427, end: 20120611
  2. CORTRIL [Concomitant]
     Indication: ADRENAL INSUFFICIENCY
     Route: 048
     Dates: start: 20120703
  3. PEG-INTRON [Suspect]
     Dosage: 0.75MCG/KG/WEEK
     Route: 058
     Dates: start: 20120620, end: 20120628
  4. REBETOL [Suspect]
     Indication: HEPATITIS C
     Route: 048
     Dates: start: 20120427, end: 20120611
  5. PEG-INTRON [Suspect]
     Indication: HEPATITIS C
     Dosage: 1.5MCG/KG/WEEK
     Route: 058
     Dates: start: 20120427, end: 20120614

REACTIONS (5)
  - CARDIAC TAMPONADE [None]
  - BACTERIAL PERICARDITIS [None]
  - PLEURAL EFFUSION [None]
  - ASCITES [None]
  - HYPOALBUMINAEMIA [None]
